FAERS Safety Report 6328892-X (Version None)
Quarter: 2009Q3

REPORT INFORMATION
  Report Type: 
  Country: None (occurrence: None)
  Receive Date: 20090826
  Receipt Date: 20090817
  Transmission Date: 20100115
  Serious: Yes (Other)
  Sender: FDA-Public Use
  Company Number: US-JNJFOC-20090709440

PATIENT
  Sex: Female
  Weight: 66.68 kg

DRUGS (6)
  1. INTELENCE [Suspect]
     Indication: HIV INFECTION
     Route: 048
  2. PREZISTA [Suspect]
     Indication: HIV INFECTION
     Route: 048
  3. NORVIR [Suspect]
     Indication: HIV INFECTION
     Route: 065
  4. ISENTRESS [Suspect]
     Indication: HIV INFECTION
     Route: 065
  5. DAPSONE [Concomitant]
     Indication: ANTIFUNGAL PROPHYLAXIS
  6. CELEXA [Concomitant]
     Indication: DEPRESSION

REACTIONS (1)
  - HYPERSENSITIVITY [None]
